FAERS Safety Report 4616023-3 (Version None)
Quarter: 2005Q1

REPORT INFORMATION
  Report Type: 
  Country: None (occurrence: None)
  Receive Date: 20050318
  Receipt Date: 20050228
  Transmission Date: 20050727
  Serious: Yes (Death, Hospitalization)
  Sender: FDA-Public Use
  Company Number: DEU-2005-0001261

PATIENT
  Age: 59 Year
  Sex: Female
  Weight: 36 kg

DRUGS (10)
  1. MORPHINE SULFATE [Suspect]
     Indication: PAIN
     Dosage: SEE TEXT, SUBCUTANEOUS
     Route: 058
     Dates: start: 20030912
  2. BACLOFEN [Concomitant]
  3. METOCLOPRAMIDE HYDROCHLORIDE [Concomitant]
  4. BRONCHORETARD [Concomitant]
  5. CIPROFLOXACIN [Concomitant]
  6. CARBAMAZEPINE [Concomitant]
  7. HEPARIN [Concomitant]
  8. LORAZEPAM [Concomitant]
  9. AUGMENTIN [Concomitant]
  10. FENTANYL ^JANSSEN^ (FENTANYL CITRATE) [Concomitant]

REACTIONS (5)
  - CARDIAC FAILURE [None]
  - DRUG TOXICITY [None]
  - EUTHANASIA [None]
  - OVERDOSE [None]
  - PNEUMONIA [None]
